FAERS Safety Report 25749546 (Version 2)
Quarter: 2025Q3

REPORT INFORMATION
  Report Type: Report from Study
  Country: US (occurrence: US)
  Receive Date: 20250902
  Receipt Date: 20250917
  Transmission Date: 20251020
  Serious: Yes (Other)
  Sender: TAKEDA
  Company Number: US-TAKEDA-2025TUS074682

PATIENT

DRUGS (1)
  1. VEDOLIZUMAB [Suspect]
     Active Substance: VEDOLIZUMAB
     Indication: Product used for unknown indication

REACTIONS (5)
  - Immunodeficiency [Unknown]
  - Ophthalmic herpes zoster [Unknown]
  - Neuralgia [Unknown]
  - Infection [Unknown]
  - Malaise [Unknown]
